FAERS Safety Report 7989699-0 (Version None)
Quarter: 2011Q4

REPORT INFORMATION
  Report Type: 
  Country: None (occurrence: None)
  Receive Date: 20111219
  Receipt Date: 20111206
  Transmission Date: 20120403
  Serious: Yes (Hospitalization, Other)
  Sender: FDA-Public Use
  Company Number: US-ELI_LILLY_AND_COMPANY-US201111000159

PATIENT
  Sex: Female
  Weight: 64 kg

DRUGS (7)
  1. CALTRATE + D [Concomitant]
  2. CARVEDILOL [Concomitant]
  3. FORTEO [Suspect]
     Dosage: 20 UG, QD
     Route: 058
  4. CENTRUM SILVER [Concomitant]
  5. PAROXETINE HCL [Concomitant]
  6. SIMVASTATIN [Concomitant]
  7. FORTEO [Suspect]
     Indication: OSTEOPOROSIS
     Dosage: 20 UG, QD
     Route: 058
     Dates: start: 20101207

REACTIONS (2)
  - COLON CANCER STAGE II [None]
  - SURGERY [None]
